FAERS Safety Report 5530989-9 (Version None)
Quarter: 2007Q4

REPORT INFORMATION
  Report Type: 
  Country: None (occurrence: None)
  Receive Date: 20071130
  Receipt Date: 20071119
  Transmission Date: 20080405
  Serious: Yes (Other)
  Sender: FDA-Public Use
  Company Number: GB-PFIZER INC-2007089566

PATIENT
  Sex: Female

DRUGS (1)
  1. CHAMPIX [Suspect]
     Route: 048
     Dates: start: 20070912, end: 20071023

REACTIONS (4)
  - CRYING [None]
  - DEPRESSION [None]
  - NAUSEA [None]
  - SUICIDAL IDEATION [None]
